FAERS Safety Report 9624711 (Version 1)
Quarter: 2013Q4

REPORT INFORMATION
  Report Type: Spontaneous
  Country: US (occurrence: US)
  Receive Date: 20131015
  Receipt Date: 20131015
  Transmission Date: 20140711
  Serious: Yes (Life-Threatening, Other)
  Sender: FDA-Public Use
  Company Number: CHPA2013US015633

PATIENT
  Age: 80 Year
  Sex: Female

DRUGS (1)
  1. EX-LAX MAX STR LAX PILLS SENNA [Suspect]
     Indication: CONSTIPATION
     Dosage: 1 DF, UNK
     Route: 048

REACTIONS (7)
  - Feeling abnormal [Recovered/Resolved]
  - Hypertension [Not Recovered/Not Resolved]
  - Large intestine perforation [Recovered/Resolved]
  - Peritonitis [Recovered/Resolved]
  - Arthritis [Not Recovered/Not Resolved]
  - Bowel movement irregularity [Unknown]
  - Underdose [Unknown]
